FAERS Safety Report 6930252-5 (Version None)
Quarter: 2010Q3

REPORT INFORMATION
  Report Type: 
  Country: None (occurrence: None)
  Receive Date: 20100818
  Receipt Date: 20100811
  Transmission Date: 20110219
  Serious: Yes (Death)
  Sender: FDA-Public Use
  Company Number: NZ-ABBOTT-10P-118-0652698-00

PATIENT
  Sex: Male

DRUGS (1)
  1. SIBUTRAMINE HYDROCHLORIDE MONOHYDRATE [Suspect]
     Indication: OBESITY
     Dates: start: 20021220, end: 20021229

REACTIONS (4)
  - ACUTE MYOCARDIAL INFARCTION [None]
  - ARTERIOSCLEROSIS [None]
  - HYPERTENSION [None]
  - HYPOTENSION [None]
